FAERS Safety Report 4941745-4 (Version None)
Quarter: 2006Q1

REPORT INFORMATION
  Report Type: 
  Country: None (occurrence: None)
  Receive Date: 20060308
  Receipt Date: 20060223
  Transmission Date: 20060701
  Serious: Yes (Life-Threatening, Hospitalization, Other)
  Sender: FDA-Public Use
  Company Number: 2006027475

PATIENT
  Age: 45 Year
  Sex: Female
  Weight: 81.6475 kg

DRUGS (8)
  1. ZYVOX [Suspect]
     Indication: OSTEOMYELITIS
     Dosage: 1200 MG (600 MG, 2 IN 1 D), ORAL
     Route: 048
     Dates: start: 20030401
  2. DEMEROL [Concomitant]
  3. PHENERGAN ^AVENTIS PHARMA^ (PROMETHAZINE HYDROCHLORIDE) [Concomitant]
  4. ATENOLOL [Concomitant]
  5. LOVENOX [Concomitant]
  6. AMBIEN [Concomitant]
  7. VITAMIN B12 [Concomitant]
  8. TOPAMAX [Concomitant]

REACTIONS (11)
  - BLINDNESS [None]
  - CONVULSION [None]
  - DIABETES MELLITUS [None]
  - EYE HAEMORRHAGE [None]
  - HAEMORRHAGE [None]
  - HYPOKALAEMIA [None]
  - NERVOUS SYSTEM DISORDER [None]
  - PULMONARY THROMBOSIS [None]
  - TOOTH DISCOLOURATION [None]
  - TOOTH FRACTURE [None]
  - VISION BLURRED [None]
